FAERS Safety Report 23719447 (Version 2)
Quarter: 2024Q2

REPORT INFORMATION
  Report Type: Spontaneous
  Country: CA (occurrence: CA)
  Receive Date: 20240408
  Receipt Date: 20240423
  Transmission Date: 20240716
  Serious: Yes (Other)
  Sender: FDA-Public Use
  Company Number: CA-PFIZER INC-202300194383

PATIENT
  Age: 71 Year
  Sex: Female

DRUGS (3)
  1. ABRILADA [Suspect]
     Active Substance: ADALIMUMAB-AFZB
     Indication: Sarcoidosis
     Dosage: 1 DF, DOSAGE INFO: REFER INF16904. DISCONTINUED
     Route: 058
  2. ABRILADA [Suspect]
     Active Substance: ADALIMUMAB-AFZB
     Dosage: 40 MG,  EVERY 2 WEEK PREFILLED SYRINGE
     Route: 058
     Dates: start: 20231121
  3. ABRILADA [Suspect]
     Active Substance: ADALIMUMAB-AFZB
     Dosage: 40 MG,  EVERY 2 WEEK PREFILLED SYRINGE
     Route: 058
     Dates: start: 202402

REACTIONS (2)
  - Cataract [Unknown]
  - Off label use [Unknown]

NARRATIVE: CASE EVENT DATE: 20230516
